FAERS Safety Report 20179088 (Version 1)
Quarter: 2021Q4

REPORT INFORMATION
  Report Type: Report from Study
  Country: NL (occurrence: NL)
  Receive Date: 20211214
  Receipt Date: 20211214
  Transmission Date: 20220303
  Serious: Yes (Other)
  Sender: FDA-Public Use
  Company Number: NL-SUN PHARMACEUTICAL INDUSTRIES LTD-2021R1-320670

PATIENT
  Age: 15 Year
  Sex: Female

DRUGS (5)
  1. METHOTREXATE [Suspect]
     Active Substance: METHOTREXATE
     Indication: Chemotherapy
     Dosage: 3000 MILLIGRAM/SQ. METER
     Route: 042
  2. CYTARABINE [Suspect]
     Active Substance: CYTARABINE
     Indication: Chemotherapy
     Dosage: 100 MILLIGRAM/SQ. METER, DAILY
     Route: 042
  3. PREDNISONE [Suspect]
     Active Substance: PREDNISONE
     Indication: Chemotherapy
     Dosage: 15 MILLIGRAM
     Route: 037
  4. METHOTREXATE [Suspect]
     Active Substance: METHOTREXATE
     Indication: Chemotherapy
     Dosage: 15 MILLIGRAM
     Route: 037
  5. CYTARABINE [Suspect]
     Active Substance: CYTARABINE
     Indication: Chemotherapy
     Dosage: 30 MILLIGRAM
     Route: 037

REACTIONS (1)
  - Posterior reversible encephalopathy syndrome [Recovered/Resolved]
